FAERS Safety Report 24177984 (Version 1)
Quarter: 2024Q3

REPORT INFORMATION
  Report Type: Spontaneous
  Country: FR (occurrence: FR)
  Receive Date: 20240806
  Receipt Date: 20240806
  Transmission Date: 20241016
  Serious: Yes (Disabling)
  Sender: LEO PHARM
  Company Number: FR-LEO Pharma-370440

PATIENT
  Age: 33 Year
  Sex: Male

DRUGS (2)
  1. ADBRY [Suspect]
     Active Substance: TRALOKINUMAB-LDRM
     Indication: Dermatitis atopic
     Route: 058
     Dates: start: 202401, end: 202403
  2. CYCLOSPORINE [Concomitant]
     Active Substance: CYCLOSPORINE
     Indication: Dermatitis atopic
     Dosage: DECREASING DOSAGE DURING OVERLAP WITH ADTRALZA
     Dates: start: 202311, end: 202403

REACTIONS (2)
  - Dry skin [Unknown]
  - Allodynia [Recovering/Resolving]

NARRATIVE: CASE EVENT DATE: 20240201
